FAERS Safety Report 4808136-8 (Version None)
Quarter: 2005Q4

REPORT INFORMATION
  Report Type: 
  Country: None (occurrence: None)
  Receive Date: 20051021
  Receipt Date: 20040721
  Transmission Date: 20060501
  Serious: Yes (Other)
  Sender: FDA-Public Use
  Company Number: USA040773452

PATIENT
  Age: 77 Year
  Sex: Female

DRUGS (3)
  1. ZYPREXA [Suspect]
     Indication: ABNORMAL BEHAVIOUR
     Dosage: 5 MG/L DAY
     Dates: start: 20031101, end: 20040301
  2. TRAZODONE HCL [Concomitant]
  3. WELLBUTRIN [Concomitant]

REACTIONS (1)
  - PLATELET COUNT DECREASED [None]
